FAERS Safety Report 5305757-3 (Version None)
Quarter: 2007Q2

REPORT INFORMATION
  Report Type: 
  Country: None (occurrence: None)
  Receive Date: 20070424
  Receipt Date: 20070416
  Transmission Date: 20071010
  Serious: Yes (Death, Life-Threatening)
  Sender: FDA-Public Use
  Company Number: CH-ELI_LILLY_AND_COMPANY-CH200704003465

PATIENT
  Age: 43 Year
  Sex: Female
  Weight: 73 kg

DRUGS (16)
  1. ZYPREXA [Suspect]
     Indication: PSYCHOTIC DISORDER
     Dosage: 10 MG, DAILY (1/D)
     Route: 048
     Dates: start: 20070314, end: 20070315
  2. ZYPREXA [Suspect]
     Dosage: 15 MG, DAILY (1/D)
     Route: 048
     Dates: start: 20070316, end: 20070318
  3. ZYPREXA [Suspect]
     Dosage: 20 MG, DAILY (1/D)
     Route: 048
     Dates: start: 20070319, end: 20070319
  4. TOLVON [Concomitant]
     Indication: DEPRESSION
     Dosage: 30 MG, DAILY (1/D)
     Route: 048
     Dates: start: 20070302, end: 20070304
  5. TOLVON [Concomitant]
     Dosage: 60 MG, DAILY (1/D)
     Route: 048
     Dates: start: 20070305, end: 20070314
  6. TOLVON [Concomitant]
     Dosage: 30 MG, DAILY (1/D)
     Route: 048
     Dates: start: 20070315, end: 20070318
  7. TEMESTA [Concomitant]
     Indication: ANXIETY
     Dosage: 2 MG, DAILY (1/D)
     Route: 048
     Dates: start: 20070203, end: 20070306
  8. TEMESTA [Concomitant]
     Dosage: 3 MG, DAILY (1/D)
     Route: 048
     Dates: start: 20070307, end: 20070314
  9. TEMESTA [Concomitant]
     Dosage: 7.5 MG, DAILY (1/D)
     Route: 048
     Dates: start: 20070315, end: 20070318
  10. TEMESTA [Concomitant]
     Dosage: 4.5 MG, DAILY (1/D)
     Route: 048
     Dates: start: 20070319, end: 20070319
  11. EMSELEX [Concomitant]
     Indication: URINARY INCONTINENCE
     Dosage: 7.5 MG, DAILY (1/D)
     Route: 048
     Dates: start: 20070315, end: 20070319
  12. PANTOZOL [Concomitant]
     Indication: REFLUX GASTRITIS
     Dosage: 20 MG, DAILY (1/D)
     Route: 048
     Dates: start: 20070220, end: 20070319
  13. RISPERDAL [Concomitant]
     Indication: PSYCHOTIC DISORDER
     Dosage: 3 MG, DAILY (1/D)
     Route: 048
     Dates: start: 20070212, end: 20070214
  14. RISPERDAL [Concomitant]
     Dosage: 4 MG, DAILY (1/D)
     Route: 048
     Dates: start: 20070215, end: 20070215
  15. RISPERDAL [Concomitant]
     Dosage: 6 MG, DAILY (1/D)
     Route: 048
     Dates: start: 20070216, end: 20070313
  16. ZYPREXA [Suspect]
     Dosage: 30 MG, OTHER
     Route: 065

REACTIONS (7)
  - ASPHYXIA [None]
  - BALANCE DISORDER [None]
  - COGWHEEL RIGIDITY [None]
  - CONVULSION [None]
  - FALL [None]
  - FATIGUE [None]
  - OVERDOSE [None]
